FAERS Safety Report 11569000 (Version 1)
Quarter: 2015Q3

REPORT INFORMATION
  Report Type: Spontaneous
  Country: US (occurrence: US)
  Receive Date: 20150929
  Receipt Date: 20150929
  Transmission Date: 20151125
  Serious: No
  Sender: FDA-Public Use
  Company Number: US-BAYER-2015-432027

PATIENT
  Age: 71 Year
  Sex: Female
  Weight: 70.3 kg

DRUGS (18)
  1. CALTRATE [CALCIUM CARBONATE,COLECALCIFEROL] [Concomitant]
  2. DULOXETINE. [Concomitant]
     Active Substance: DULOXETINE
  3. LYRICA [Concomitant]
     Active Substance: PREGABALIN
  4. VITAMIN B12 [Concomitant]
     Active Substance: CYANOCOBALAMIN
  5. BUSPIRONE [Concomitant]
     Active Substance: BUSPIRONE HYDROCHLORIDE
  6. MULTIVITAMIN [Concomitant]
     Active Substance: VITAMINS
  7. FOLIC ACID. [Concomitant]
     Active Substance: FOLIC ACID
  8. WELLBUTRIN [Concomitant]
     Active Substance: BUPROPION HYDROCHLORIDE
  9. VITAMIN D3 [Concomitant]
     Active Substance: CHOLECALCIFEROL
  10. VITAMIN E [Concomitant]
     Active Substance: .ALPHA.-TOCOPHEROL
  11. METHOTREXATE [Concomitant]
     Active Substance: METHOTREXATE
  12. PANTOPRAZOLE [Concomitant]
     Active Substance: PANTOPRAZOLE SODIUM
  13. ADVIL [Concomitant]
     Active Substance: IBUPROFEN
  14. ALEVE [Suspect]
     Active Substance: NAPROXEN SODIUM
     Indication: ARTHRITIS
     Dosage: 1 DF, BID
     Route: 048
     Dates: start: 20150922, end: 20150924
  15. VERAPAMIL [Concomitant]
     Active Substance: VERAPAMIL HYDROCHLORIDE
  16. VITAMIN C [Concomitant]
     Active Substance: ASCORBIC ACID
  17. TYLENOL ARTHRITIS PAIN [Concomitant]
     Active Substance: ACETAMINOPHEN
  18. SYNTHROID [Concomitant]
     Active Substance: LEVOTHYROXINE SODIUM

REACTIONS (2)
  - Diarrhoea [Not Recovered/Not Resolved]
  - Mucous stools [None]

NARRATIVE: CASE EVENT DATE: 20150923
